FAERS Safety Report 5950493-3 (Version None)
Quarter: 2008Q4

REPORT INFORMATION
  Report Type: 
  Country: None (occurrence: None)
  Receive Date: 20081022
  Receipt Date: 20080612
  Transmission Date: 20090506
  Serious: No
  Sender: FDA-Public Use
  Company Number: SPV1-2008-01293

PATIENT
  Age: 12 Year
  Sex: Male
  Weight: 57.1 kg

DRUGS (2)
  1. VYVANSE [Suspect]
     Indication: ATTENTION DEFICIT/HYPERACTIVITY DISORDER
     Dosage: 30, 2X/DAY:BID, ORAL ; 30 MG, 1X/DAY:QD, ORAL
     Route: 048
     Dates: start: 20080327, end: 20080611
  2. VYVANSE [Suspect]
     Indication: ATTENTION DEFICIT/HYPERACTIVITY DISORDER
     Dosage: 30, 2X/DAY:BID, ORAL ; 30 MG, 1X/DAY:QD, ORAL
     Route: 048
     Dates: start: 20080612

REACTIONS (5)
  - BUNDLE BRANCH BLOCK RIGHT [None]
  - CHEST PAIN [None]
  - DIZZINESS [None]
  - ELECTROCARDIOGRAM QRS COMPLEX PROLONGED [None]
  - INAPPROPRIATE SCHEDULE OF DRUG ADMINISTRATION [None]
